FAERS Safety Report 16483269 (Version 2)
Quarter: 2019Q3

REPORT INFORMATION
  Report Type: Report from Study
  Country: BE (occurrence: BE)
  Receive Date: 20190627
  Receipt Date: 20190912
  Transmission Date: 20191004
  Serious: Yes (Other)
  Sender: FDA-Public Use
  Company Number: BE-PFIZER INC-2019270278

PATIENT
  Age: 70 Year
  Sex: Male
  Weight: 73 kg

DRUGS (26)
  1. ASAFLOW [Concomitant]
     Active Substance: ASPIRIN
     Route: 065
     Dates: start: 2004
  2. IRINOTECAN HCL [Suspect]
     Active Substance: IRINOTECAN HYDROCHLORIDE
     Dosage: 267 MG, EVERY TWO WEEKS
     Route: 042
     Dates: start: 20181012
  3. FLUOROURACIL. [Suspect]
     Active Substance: FLUOROURACIL
     Dosage: 4320 MG, EVERY TWO WEEKS
     Route: 042
     Dates: start: 20180831
  4. LEUCOVORIN [FOLINIC ACID] [Suspect]
     Active Substance: LEUCOVORIN
     Indication: COLORECTAL CANCER METASTATIC
     Dosage: 1 UNK, EVERY TWO WEEKS
     Route: 042
     Dates: start: 20180803
  5. LEUCOVORIN [FOLINIC ACID] [Suspect]
     Active Substance: LEUCOVORIN
     Dosage: 4320 MG, EVERY TWO WEEKS
     Route: 042
     Dates: start: 20181201
  6. IRINOTECAN HCL [Suspect]
     Active Substance: IRINOTECAN HYDROCHLORIDE
     Dosage: 262 MG, EVERY TWO WEEKS
     Route: 042
     Dates: start: 20181109
  7. LEUCOVORIN [FOLINIC ACID] [Suspect]
     Active Substance: LEUCOVORIN
     Dosage: 4320 MG, EVERY TWO WEEKS
     Route: 042
     Dates: start: 20180831
  8. LEUCOVORIN [FOLINIC ACID] [Suspect]
     Active Substance: LEUCOVORIN
     Dosage: 4272 MG, EVERY TWO WEEKS
     Route: 042
     Dates: start: 20181012
  9. DULOXETINE. [Concomitant]
     Active Substance: DULOXETINE
     Route: 065
     Dates: start: 2006
  10. FLUOROURACIL. [Suspect]
     Active Substance: FLUOROURACIL
     Dosage: 1 UNK, EVERY TWO WEEKS
     Route: 042
     Dates: start: 20180803
  11. FLUOROURACIL. [Suspect]
     Active Substance: FLUOROURACIL
     Dosage: 4272 MG, EVERY TWO WEEKS
     Route: 042
     Dates: start: 20181012
  12. FLUOROURACIL. [Suspect]
     Active Substance: FLUOROURACIL
     Indication: COLORECTAL CANCER METASTATIC
     Dosage: 4296 MG, EVERY TWO WEEKS
     Route: 042
     Dates: start: 20181026
  13. FLUOROURACIL. [Suspect]
     Active Substance: FLUOROURACIL
     Dosage: 4200 MG, EVERY 2 WEEKS
     Route: 042
     Dates: start: 20181109
  14. LEUCOVORIN [FOLINIC ACID] [Suspect]
     Active Substance: LEUCOVORIN
     Dosage: 4296 MG, EVERY TWO WEEKS
     Route: 042
     Dates: start: 20181026
  15. LEUCOVORIN [FOLINIC ACID] [Suspect]
     Active Substance: LEUCOVORIN
     Dosage: 4200 MG, EVERY TWO WEEKS
     Route: 042
     Dates: start: 20181109
  16. BEVACIZUMAB. [Suspect]
     Active Substance: BEVACIZUMAB
     Indication: COLORECTAL CANCER METASTATIC
     Dosage: 1 UNK, EVERY TWO WEEKS
     Route: 042
     Dates: start: 20180803
  17. BEVACIZUMAB. [Suspect]
     Active Substance: BEVACIZUMAB
     Dosage: 320 MG, EVERY TWO WEEKS
     Route: 042
     Dates: start: 20181012
  18. BEVACIZUMAB. [Suspect]
     Active Substance: BEVACIZUMAB
     Dosage: 322 MG, EVERY TWO WEEKS
     Route: 042
     Dates: start: 20180831
  19. IRINOTECAN HCL [Suspect]
     Active Substance: IRINOTECAN HYDROCHLORIDE
     Dosage: 1 UNK, EVERY TWO WEEKS
     Route: 042
     Dates: start: 20180803
  20. IRINOTECAN HCL [Suspect]
     Active Substance: IRINOTECAN HYDROCHLORIDE
     Dosage: 270 MG, EVERY TWO WEEKS
     Route: 042
     Dates: start: 20181201
  21. FLUOROURACIL. [Suspect]
     Active Substance: FLUOROURACIL
     Dosage: 4320 MG, EVERY TWO WEEKS
     Route: 042
     Dates: start: 20181201
  22. IRINOTECAN HCL [Suspect]
     Active Substance: IRINOTECAN HYDROCHLORIDE
     Dosage: 324 MG, EVERY TWO WEEKS
     Route: 042
     Dates: start: 20180831
  23. TAMSULOSINE [TAMSULOSIN] [Concomitant]
     Active Substance: TAMSULOSIN
     Route: 065
     Dates: start: 20180725
  24. CONTRAMAL [Concomitant]
     Active Substance: TRAMADOL HYDROCHLORIDE
     Route: 065
     Dates: start: 20180626
  25. DAFLON [DIOSMIN;HESPERIDIN] [Concomitant]
     Route: 065
     Dates: start: 2005
  26. PARACETAMOL [Concomitant]
     Active Substance: ACETAMINOPHEN
     Route: 065
     Dates: start: 20180626

REACTIONS (26)
  - Stomal hernia [Not Recovered/Not Resolved]
  - Headache [Not Recovered/Not Resolved]
  - Chest pain [Recovered/Resolved]
  - Mucosal inflammation [Recovered/Resolved]
  - Dry skin [Recovered/Resolved]
  - Oropharyngeal pain [Recovered/Resolved]
  - Epistaxis [Not Recovered/Not Resolved]
  - Stoma site haemorrhage [Recovered/Resolved]
  - Nasal congestion [Recovered/Resolved]
  - Anaemia [Not Recovered/Not Resolved]
  - Dysphonia [Not Recovered/Not Resolved]
  - Nasopharyngitis [Recovered/Resolved]
  - Skin fissures [Recovered/Resolved]
  - Cough [Recovered/Resolved]
  - Oral herpes [Recovered/Resolved]
  - Pyrexia [Recovered/Resolved]
  - Abdominal pain [Recovered/Resolved]
  - Viral infection [Recovered/Resolved]
  - Neutropenia [Recovered/Resolved]
  - Stoma site pain [Not Recovered/Not Resolved]
  - Palmar-plantar erythrodysaesthesia syndrome [Not Recovered/Not Resolved]
  - Dysuria [Recovered/Resolved]
  - Blood iron decreased [Recovered/Resolved]
  - Polyneuropathy [Recovered/Resolved]
  - Lung infection [Recovered/Resolved]
  - Stoma complication [Recovered/Resolved]

NARRATIVE: CASE EVENT DATE: 20180817
